FAERS Safety Report 9768819 (Version 1)
Quarter: 2013Q4

REPORT INFORMATION
  Report Type: Spontaneous
  Country: IT (occurrence: IT)
  Receive Date: 20131218
  Receipt Date: 20131218
  Transmission Date: 20140711
  Serious: Yes (Hospitalization)
  Sender: FDA-Public Use
  Company Number: PHHY2013IT145838

PATIENT
  Age: 75 Year
  Sex: Male

DRUGS (1)
  1. ROPINIROLE SANDOZ [Suspect]
     Dosage: 8 MG, QD
     Route: 048

REACTIONS (1)
  - Convulsion [Unknown]
